FAERS Safety Report 12060054 (Version 2)
Quarter: 2016Q1

REPORT INFORMATION
  Report Type: Report from Study
  Country: US (occurrence: US)
  Receive Date: 20160210
  Receipt Date: 20160219
  Transmission Date: 20160526
  Serious: Yes (Death, Other)
  Sender: FDA-Public Use
  Company Number: US-AMGEN-USASL2016015019

PATIENT
  Age: 57 Year
  Sex: Female
  Weight: 122.9 kg

DRUGS (18)
  1. ARIMIDEX [Concomitant]
     Active Substance: ANASTROZOLE
     Dosage: UNK
     Dates: start: 201402, end: 20140618
  2. ZOFRAN [Concomitant]
     Active Substance: ONDANSETRON HYDROCHLORIDE
     Dosage: 8 MG, UNK
  3. XGEVA [Suspect]
     Active Substance: DENOSUMAB
     Indication: PRODUCT USED FOR UNKNOWN INDICATION
     Dosage: UNK UNK, QMO
     Route: 065
     Dates: start: 201402
  4. CALCIUM [Concomitant]
     Active Substance: CALCIUM
     Dosage: 1250 UNK, UNK
  5. MELOXICAM. [Concomitant]
     Active Substance: MELOXICAM
     Dosage: 15 MG, UNK
  6. NEULASTA [Suspect]
     Active Substance: PEGFILGRASTIM
     Indication: BREAST CANCER FEMALE
     Dosage: UNK, UNK
     Route: 065
  7. TAMOXIFEN [Concomitant]
     Active Substance: TAMOXIFEN
     Indication: BREAST CANCER
     Dosage: UNK
  8. CALCIUM [Concomitant]
     Active Substance: CALCIUM
     Dosage: 500 MG, UNK
  9. ADRIAMYCIN [Concomitant]
     Active Substance: DOXORUBICIN HYDROCHLORIDE
     Indication: BREAST CANCER
     Dosage: UNK
  10. CYTOXAN [Concomitant]
     Active Substance: CYCLOPHOSPHAMIDE
     Indication: BREAST CANCER
     Dosage: UNK
  11. TAXOL [Concomitant]
     Active Substance: PACLITAXEL
     Indication: BREAST CANCER
     Dosage: UNK
  12. FASLODEX [Concomitant]
     Active Substance: FULVESTRANT
     Dosage: UNK
  13. NEULASTA [Suspect]
     Active Substance: PEGFILGRASTIM
     Indication: CONVALESCENT
  14. BENADRYL [Concomitant]
     Active Substance: DIPHENHYDRAMINE HYDROCHLORIDE
     Dosage: 25 MG, UNK
  15. METFORMIN [Concomitant]
     Active Substance: METFORMIN HYDROCHLORIDE
     Dosage: 1000 MG, UNK
  16. VITAMIN D3 [Concomitant]
     Active Substance: CHOLECALCIFEROL
     Dosage: 4000 UNIT, UNK
  17. LIDODERM [Concomitant]
     Active Substance: LIDOCAINE
     Dosage: 700 MG, ADHESIVE PATCH
  18. LISINOPRIL. [Concomitant]
     Active Substance: LISINOPRIL
     Dosage: 20 MG, UNK

REACTIONS (29)
  - Fatigue [Unknown]
  - Diabetes mellitus [Unknown]
  - Obesity [Unknown]
  - Anaemia [Unknown]
  - Depression [Unknown]
  - Wheelchair user [Unknown]
  - Walking aid user [Unknown]
  - General physical health deterioration [Unknown]
  - Ascites [Unknown]
  - Dyspepsia [Unknown]
  - Oedema peripheral [Unknown]
  - Blood bilirubin increased [Unknown]
  - Malignant neoplasm progression [Unknown]
  - Tumour marker increased [Unknown]
  - Decreased appetite [Unknown]
  - Iron deficiency [Unknown]
  - Back pain [Unknown]
  - Pancytopenia [Unknown]
  - Constipation [Unknown]
  - Influenza [Recovered/Resolved]
  - Activities of daily living impaired [Unknown]
  - Death [Fatal]
  - Pain [Unknown]
  - Hydronephrosis [Unknown]
  - Hypertension [Unknown]
  - Thrombocytopenia [Unknown]
  - Dyspnoea [Unknown]
  - Urinary incontinence [Unknown]
  - Upper respiratory tract infection [Unknown]

NARRATIVE: CASE EVENT DATE: 201412
